FAERS Safety Report 9551266 (Version 1)
Quarter: 2013Q3

REPORT INFORMATION
  Report Type: Report from Study
  Country: CA (occurrence: CA)
  Receive Date: 20130925
  Receipt Date: 20130925
  Transmission Date: 20140515
  Serious: Yes (Other)
  Sender: FDA-Public Use
  Company Number: CA-ROCHE-1279931

PATIENT
  Age: 50 Year
  Sex: Female
  Weight: 79.4 kg

DRUGS (14)
  1. XELODA [Suspect]
     Indication: BREAST CANCER
     Route: 048
     Dates: start: 20130920
  2. NAPROXEN [Concomitant]
     Route: 065
  3. HYDROMORPH CONTIN [Concomitant]
  4. AVAPRO [Concomitant]
  5. LOVENOX [Concomitant]
  6. PREVACID [Concomitant]
  7. HYDROMORPHONE [Concomitant]
  8. SYNTHROID [Concomitant]
  9. FLOVENT [Concomitant]
  10. PROCHLORPERAZINE [Concomitant]
  11. PAMIDRONATE [Concomitant]
  12. RELAXA (CANADA) [Concomitant]
  13. ZOPICLONE [Concomitant]
  14. DEXAMETHASONE [Concomitant]

REACTIONS (1)
  - Blood glucose increased [Not Recovered/Not Resolved]
